FAERS Safety Report 8597328-0 (Version None)
Quarter: 2012Q3

REPORT INFORMATION
  Report Type: 
  Country: None (occurrence: None)
  Receive Date: 20120816
  Receipt Date: 20120814
  Transmission Date: 20120928
  Serious: No
  Sender: FDA-Public Use
  Company Number: US-PFIZER INC-2012199017

PATIENT
  Sex: Male

DRUGS (1)
  1. LYRICA [Suspect]
     Indication: FALL
     Dosage: UNK
     Dates: start: 20120801

REACTIONS (2)
  - OEDEMA PERIPHERAL [None]
  - DRY MOUTH [None]
